FAERS Safety Report 8168328-X (Version None)
Quarter: 2012Q1

REPORT INFORMATION
  Report Type: 
  Country: None (occurrence: None)
  Receive Date: 20120222
  Receipt Date: 20120215
  Transmission Date: 20120608
  Serious: Yes (Other)
  Sender: FDA-Public Use
  Company Number: AUR-APL-2011-06191

PATIENT
  Age: 67 Year
  Sex: Female

DRUGS (5)
  1. ALENDRONIC ACID (ALENDRONIC ACID) [Suspect]
     Indication: OSTEOPENIA
     Dosage: 0.1429 DOSAGE FORMS (1 DOSAGE FORMS, 1 IN 1 WK), ORAL
     Route: 048
     Dates: start: 20111008
  2. CLONAZEPAM [Concomitant]
  3. FLUOXETINE [Concomitant]
  4. SIMVASTATIN [Concomitant]
  5. LAMOTRIGINE [Concomitant]

REACTIONS (9)
  - RETCHING [None]
  - RASH MACULAR [None]
  - ERYTHEMA [None]
  - INFLUENZA LIKE ILLNESS [None]
  - VOMITING [None]
  - DACRYOSTENOSIS ACQUIRED [None]
  - NAUSEA [None]
  - TREATMENT NONCOMPLIANCE [None]
  - GRANULOMA [None]
